FAERS Safety Report 14392744 (Version 1)
Quarter: 2018Q1

REPORT INFORMATION
  Report Type: Spontaneous
  Country: US (occurrence: US)
  Receive Date: 20180112
  Receipt Date: 20180112
  Transmission Date: 20180509
  Serious: Yes (Other)
  Sender: FDA-Public Use
  Company Number: None

PATIENT
  Age: 58 Year
  Sex: Female
  Weight: 57.6 kg

DRUGS (1)
  1. ACETAMINOPHEN HYDROCODONE AMNEAL PHARMACEUTICALS [Suspect]
     Active Substance: ACETAMINOPHEN\HYDROCODONE BITARTRATE
     Dosage: ?          QUANTITY:1 TABLET(S);?
     Route: 048
     Dates: start: 20160218, end: 20160218

REACTIONS (2)
  - Pain [None]
  - Product substitution issue [None]

NARRATIVE: CASE EVENT DATE: 20180112
